FAERS Safety Report 15554121 (Version 1)
Quarter: 2018Q4

REPORT INFORMATION
  Report Type: Spontaneous
  Country: US (occurrence: US)
  Receive Date: 20181025
  Receipt Date: 20181025
  Transmission Date: 20190205
  Serious: Yes (Disabling)
  Sender: FDA-Public Use
  Company Number: None

PATIENT
  Age: 48 Year
  Sex: Female
  Weight: 49.5 kg

DRUGS (1)
  1. CIPROFLOAXCIN 500 MG TABLETS [Suspect]
     Active Substance: CIPROFLOXACIN
     Indication: NEPHROLITHIASIS
     Dosage: ?          QUANTITY:20 TABLET(S);?
     Route: 048

REACTIONS (19)
  - Tendon pain [None]
  - Palpitations [None]
  - Feeling abnormal [None]
  - Communication disorder [None]
  - Alopecia [None]
  - Cognitive disorder [None]
  - Product complaint [None]
  - Fatigue [None]
  - Head discomfort [None]
  - Weight decreased [None]
  - Visual impairment [None]
  - Gastric disorder [None]
  - Pain in extremity [None]
  - Gait inability [None]
  - Muscular weakness [None]
  - Depression [None]
  - Anxiety [None]
  - Joint stiffness [None]
  - Back pain [None]

NARRATIVE: CASE EVENT DATE: 20170801
